FAERS Safety Report 23261498 (Version 1)
Quarter: 2023Q4

REPORT INFORMATION
  Report Type: Report from Study
  Country: US (occurrence: US)
  Receive Date: 20231205
  Receipt Date: 20231205
  Transmission Date: 20240110
  Serious: Yes (Other)
  Sender: FDA-Public Use
  Company Number: US-UCBSA-2023051637

PATIENT
  Age: 54 Year
  Sex: Female

DRUGS (1)
  1. CERTOLIZUMAB PEGOL [Suspect]
     Active Substance: CERTOLIZUMAB PEGOL
     Indication: Rheumatoid arthritis
     Dosage: LOADING DOSE: 400 MILLIGRAM, EV 2 WEEKS(QOW) WEEK 0, 2, 4
     Route: 058
     Dates: start: 20231003

REACTIONS (4)
  - Rheumatoid arthritis [Unknown]
  - Scar [Recovered/Resolved]
  - Injection site swelling [Recovered/Resolved]
  - Product preparation error [Unknown]

NARRATIVE: CASE EVENT DATE: 20231001
